FAERS Safety Report 25878403 (Version 2)
Quarter: 2025Q4

REPORT INFORMATION
  Report Type: Spontaneous
  Country: EU (occurrence: EU)
  Receive Date: 20251003
  Receipt Date: 20251204
  Transmission Date: 20260117
  Serious: Yes (Hospitalization)
  Sender: PFIZER
  Company Number: EU-PFIZER INC-PV202500117853

PATIENT
  Age: 31 Year
  Sex: Male

DRUGS (1)
  1. ETRASIMOD [Suspect]
     Active Substance: ETRASIMOD
     Indication: Colitis ulcerative

REACTIONS (1)
  - Listeriosis [Unknown]
